FAERS Safety Report 4815193-1 (Version None)
Quarter: 2005Q4

REPORT INFORMATION
  Report Type: 
  Country: None (occurrence: None)
  Receive Date: 20051027
  Receipt Date: 20051020
  Transmission Date: 20060501
  Serious: Yes (Other)
  Sender: FDA-Public Use
  Company Number: 005915

PATIENT
  Age: 65 Year
  Sex: Female

DRUGS (3)
  1. MEDROXYPROGESTERONE ACETATE [Suspect]
     Dosage: ORAL
     Route: 048
     Dates: start: 19860101, end: 20030801
  2. PROVERA [Suspect]
     Dosage: ORAL
     Route: 048
     Dates: start: 19860101, end: 20030801
  3. PREMARIN [Suspect]
     Dosage: ORAL
     Route: 048
     Dates: start: 19860101, end: 20030801

REACTIONS (1)
  - BREAST CANCER [None]
